FAERS Safety Report 8059820-7 (Version None)
Quarter: 2012Q1

REPORT INFORMATION
  Report Type: 
  Country: None (occurrence: None)
  Receive Date: 20120120
  Receipt Date: 20120110
  Transmission Date: 20120608
  Serious: Yes (Hospitalization)
  Sender: FDA-Public Use
  Company Number: US-JNJFOC-20111104894

PATIENT
  Sex: Male

DRUGS (27)
  1. LYRICA [Suspect]
     Indication: PRODUCT USED FOR UNKNOWN INDICATION
     Route: 065
  2. PREDNISONE TAB [Concomitant]
     Indication: CROHN'S DISEASE
     Route: 065
  3. CARAFATE [Concomitant]
     Indication: GASTROOESOPHAGEAL REFLUX DISEASE
     Route: 065
  4. ASPIRIN [Concomitant]
     Indication: PROPHYLAXIS
     Route: 065
  5. VALIUM [Concomitant]
     Route: 065
  6. ZOLPIDEM [Concomitant]
     Route: 065
  7. ULTRAM [Concomitant]
     Indication: PRODUCT USED FOR UNKNOWN INDICATION
     Route: 065
  8. M.V.I. [Concomitant]
     Indication: MEDICAL DIET
     Route: 065
  9. LISINOPRIL [Concomitant]
     Indication: HYPERTENSION
     Route: 065
  10. NIFEDIPINE [Concomitant]
     Route: 065
  11. CALCIUM CARBONATE [Concomitant]
     Route: 065
  12. ALLOPURINOL [Concomitant]
     Indication: GOUT
     Route: 065
  13. VITAMIN B-12 [Concomitant]
     Indication: ANAEMIA VITAMIN B12 DEFICIENCY
     Route: 030
  14. SODIUM PHOSPHATE [Concomitant]
     Indication: CONSTIPATION
     Route: 065
  15. DOCUSATE [Concomitant]
     Route: 065
  16. ACETAMINOPHEN [Concomitant]
     Route: 065
  17. BACTRIM [Suspect]
     Indication: PRODUCT USED FOR UNKNOWN INDICATION
     Route: 065
  18. BENAZEPRIL HYDROCHLORIDE [Suspect]
     Indication: PRODUCT USED FOR UNKNOWN INDICATION
     Route: 065
  19. PROBIOTICS [Concomitant]
     Indication: FLATULENCE
     Route: 065
  20. UNKNOWN ALLERGY SHOTS [Concomitant]
     Indication: MULTIPLE ALLERGIES
     Route: 065
  21. REMICADE [Suspect]
     Route: 042
     Dates: start: 20111012
  22. REMICADE [Suspect]
     Route: 042
     Dates: start: 20111109
  23. HYDRALAZINE HCL [Concomitant]
     Route: 065
  24. ZYRTEC [Concomitant]
     Route: 065
  25. REMICADE [Suspect]
     Indication: CROHN'S DISEASE
     Route: 042
     Dates: start: 20110923
  26. FOLIC ACID [Concomitant]
     Route: 065
  27. SUCRALFATE [Concomitant]
     Route: 065

REACTIONS (18)
  - HEAD INJURY [None]
  - VISUAL IMPAIRMENT [None]
  - MUSCLE SPASMS [None]
  - MUSCULAR WEAKNESS [None]
  - CONSTIPATION [None]
  - RENAL FAILURE ACUTE [None]
  - CEREBRAL ATROPHY [None]
  - MEMORY IMPAIRMENT [None]
  - GAIT DISTURBANCE [None]
  - HEADACHE [None]
  - BACK PAIN [None]
  - HYPERTENSION [None]
  - ONYCHOGRYPHOSIS [None]
  - URINARY RETENTION [None]
  - SPINAL OSTEOARTHRITIS [None]
  - FALL [None]
  - TREMOR [None]
  - AZOTAEMIA [None]
